FAERS Safety Report 5567980-2 (Version None)
Quarter: 2007Q4

REPORT INFORMATION
  Report Type: 
  Country: None (occurrence: None)
  Receive Date: 20071218
  Receipt Date: 20071203
  Transmission Date: 20080405
  Serious: Yes (Other)
  Sender: FDA-Public Use
  Company Number: 2007S1011457

PATIENT
  Age: 72 Year
  Sex: Male
  Weight: 88.905 kg

DRUGS (2)
  1. FENTANYL TRANSDERMAL SYSTEM [Suspect]
     Indication: BACK PAIN
     Dosage: 25 UG/HR; EVERY 3 DAYS; TRANSDERMAL; 25 UG/HR; X1; TRANSDERMAL
     Route: 062
     Dates: start: 20070827
  2. OXYCODONE WITH APAP /00554201/ [Concomitant]

REACTIONS (2)
  - HYPERSENSITIVITY [None]
  - PRURITUS [None]
